FAERS Safety Report 19805342 (Version 1)
Quarter: 2021Q3

REPORT INFORMATION
  Report Type: Spontaneous
  Country: US (occurrence: US)
  Receive Date: 20210909
  Receipt Date: 20210909
  Transmission Date: 20211014
  Serious: No
  Sender: FDA-Public Use
  Company Number: US-STRIDES ARCOLAB LIMITED-2021SP005190

PATIENT
  Age: 36 Year
  Sex: Female

DRUGS (5)
  1. JUVEDERM ULTRA [Concomitant]
     Active Substance: HYALURONIC ACID
     Dosage: 1 MILLILITER
     Dates: start: 201911
  2. MODERNA COVID?19 VACCINE [Concomitant]
     Active Substance: CX-024414
     Indication: COVID-19
     Dosage: UNK 1ST DOSE RECEIVED ONE MONTH LATER
     Route: 065
     Dates: start: 202012
  3. CETIRIZINE [Suspect]
     Active Substance: CETIRIZINE HYDROCHLORIDE
     Indication: INFLAMMATION
     Dosage: 20 MILLIGRAM
     Route: 065
  4. JUVEDERM ULTRA [Concomitant]
     Active Substance: HYALURONIC ACID
     Indication: DERMAL FILLER INJECTION
     Dosage: 1 MILLILITER
     Dates: start: 201911
  5. MODERNA COVID?19 VACCINE [Concomitant]
     Active Substance: CX-024414
     Dosage: UNK 2ND DOSE
     Route: 065
     Dates: start: 202012

REACTIONS (1)
  - Drug ineffective for unapproved indication [Unknown]
